FAERS Safety Report 18310947 (Version 4)
Quarter: 2020Q4

REPORT INFORMATION
  Report Type: Spontaneous
  Country: US (occurrence: US)
  Receive Date: 20200925
  Receipt Date: 20201020
  Transmission Date: 20210113
  Serious: No
  Sender: FDA-Public Use
  Company Number: US-BIOGEN-2020BI00908692

PATIENT
  Age: 57 Year
  Sex: Female

DRUGS (17)
  1. OMEPRAZOLE. [Concomitant]
     Active Substance: OMEPRAZOLE
     Route: 065
  2. TECFIDERA [Suspect]
     Active Substance: DIMETHYL FUMARATE
     Indication: MULTIPLE SCLEROSIS
     Dosage: TOOK THIS DOSE FOR 7 DAYS
     Route: 065
     Dates: start: 20200801
  3. BIOTIN [Concomitant]
     Active Substance: BIOTIN
     Route: 065
  4. MELOXICAM. [Concomitant]
     Active Substance: MELOXICAM
     Route: 065
  5. PROZAC [Concomitant]
     Active Substance: FLUOXETINE HYDROCHLORIDE
     Route: 065
  6. TECFIDERA [Suspect]
     Active Substance: DIMETHYL FUMARATE
     Route: 065
     Dates: start: 20200805
  7. MODANAFIL [Concomitant]
     Route: 065
  8. TECFIDERA [Suspect]
     Active Substance: DIMETHYL FUMARATE
     Dosage: STARTED ON DAY 8
     Route: 065
     Dates: start: 20200808
  9. TECFIDERA [Suspect]
     Active Substance: DIMETHYL FUMARATE
     Route: 065
  10. CALCIUM [Concomitant]
     Active Substance: CALCIUM
     Route: 065
  11. VITAMIN D3 [Concomitant]
     Active Substance: CHOLECALCIFEROL
     Route: 065
  12. METOPROL SUC [Concomitant]
     Route: 065
  13. ALBUTEROL. [Concomitant]
     Active Substance: ALBUTEROL
     Route: 065
  14. DESVENLAFAX [Concomitant]
     Route: 065
  15. METOPROL TAR [Concomitant]
     Route: 065
  16. BACLOFEN. [Concomitant]
     Active Substance: BACLOFEN
     Route: 065
  17. BUPROPION. [Concomitant]
     Active Substance: BUPROPION
     Route: 065

REACTIONS (23)
  - Abdominal pain [Not Recovered/Not Resolved]
  - Diplopia [Not Recovered/Not Resolved]
  - Hypersomnia [Unknown]
  - Abdominal pain upper [Recovered/Resolved]
  - Headache [Not Recovered/Not Resolved]
  - Somnolence [Unknown]
  - Arthralgia [Recovered/Resolved]
  - Tremor [Recovered/Resolved]
  - Pruritus [Unknown]
  - Pain in extremity [Unknown]
  - Drug ineffective [Unknown]
  - Accidental underdose [Recovered/Resolved]
  - Pyrexia [Not Recovered/Not Resolved]
  - Skin burning sensation [Unknown]
  - Nausea [Unknown]
  - Asthenopia [Not Recovered/Not Resolved]
  - Seasonal allergy [Unknown]
  - Liver disorder [Unknown]
  - Chest pain [Recovered/Resolved]
  - Gastric disorder [Recovered/Resolved]
  - Decreased appetite [Unknown]
  - Pain [Unknown]
  - Flushing [Unknown]

NARRATIVE: CASE EVENT DATE: 20200801
